FAERS Safety Report 9483578 (Version 1)
Quarter: 2013Q3

REPORT INFORMATION
  Report Type: Spontaneous
  Country: CA (occurrence: CA)
  Receive Date: 20130828
  Receipt Date: 20130828
  Transmission Date: 20140515
  Serious: Yes (Other)
  Sender: FDA-Public Use
  Company Number: CA-AMGEN-KDL291978

PATIENT
  Age: 63 Year
  Sex: Female

DRUGS (3)
  1. ENBREL [Suspect]
     Indication: RHEUMATOID ARTHRITIS
     Dosage: UNK UNK, 2 TIMES/WK
     Route: 058
     Dates: start: 20011106
  2. PREDNISONE [Concomitant]
     Dosage: 2.5 MG, UNK
  3. METHOTREXATE [Concomitant]
     Dosage: UNK UNK, UNK

REACTIONS (10)
  - Breast cancer [Not Recovered/Not Resolved]
  - Liver disorder [Unknown]
  - Pyrexia [Unknown]
  - Vomiting [Unknown]
  - Hyperhidrosis [Unknown]
  - Chills [Unknown]
  - Tremor [Unknown]
  - Cough [Unknown]
  - Malaise [Unknown]
  - Nausea [Unknown]
